FAERS Safety Report 17642868 (Version 2)
Quarter: 2022Q2

REPORT INFORMATION
  Report Type: Spontaneous
  Country: US (occurrence: US)
  Receive Date: 20200408
  Receipt Date: 20220415
  Transmission Date: 20220721
  Serious: Yes (Other)
  Sender: FDA-Public Use
  Company Number: US-ALLERGAN-1934124US

PATIENT
  Age: 31 Year
  Sex: Female
  Weight: 61.224 kg

DRUGS (1)
  1. LILETTA [Suspect]
     Active Substance: LEVONORGESTREL
     Indication: Contraception
     Dosage: 52 MG, SINGLE
     Route: 015
     Dates: start: 20181004, end: 20190814

REACTIONS (4)
  - Device dislocation [Recovered/Resolved]
  - Uterine perforation [Recovered/Resolved]
  - Dyspareunia [Not Recovered/Not Resolved]
  - Device breakage [Unknown]

NARRATIVE: CASE EVENT DATE: 20190701
